FAERS Safety Report 19198086 (Version 2)
Quarter: 2024Q4

REPORT INFORMATION
  Report Type: Spontaneous
  Country: US (occurrence: US)
  Receive Date: 20210429
  Receipt Date: 20241025
  Transmission Date: 20250114
  Serious: No
  Sender: BIOMARIN
  Company Number: US-BIOMARINAP-US-2021-136038

PATIENT

DRUGS (3)
  1. KUVAN [Suspect]
     Active Substance: SAPROPTERIN DIHYDROCHLORIDE
     Indication: Phenylketonuria
     Dosage: 1500 MILLIGRAM, QD
     Route: 048
     Dates: start: 201801
  2. PALYNZIQ [Suspect]
     Active Substance: PEGVALIASE-PQPZ
     Indication: Phenylketonuria
     Dosage: 20 MILLIGRAM, QD
     Route: 058
  3. PALYNZIQ [Suspect]
     Active Substance: PEGVALIASE-PQPZ
     Dosage: UNK
     Route: 058
     Dates: start: 20210103

REACTIONS (2)
  - Arthritis [Recovered/Resolved]
  - Arthralgia [Unknown]
